FAERS Safety Report 8854544 (Version 1)
Quarter: 2012Q4

REPORT INFORMATION
  Report Type: 
  Country: US (occurrence: US)
  Receive Date: 20121023
  Receipt Date: 20121023
  Transmission Date: 20130627
  Serious: No
  Sender: FDA-Public Use
  Company Number: US-VERTEX PHARMACEUTICAL INC.-2012-023028

PATIENT
  Sex: Female
  Weight: 49 kg

DRUGS (4)
  1. VX-950 [Suspect]
     Indication: HEPATITIS C
     Dosage: 750 mg, tid
     Route: 048
     Dates: start: 2012
  2. PEGASYS [Concomitant]
     Indication: HEPATITIS C
     Dosage: 135 ?g, UNK
     Route: 058
     Dates: start: 2012
  3. RIBAVIRIN [Concomitant]
     Indication: HEPATITIS C
     Dosage: 800 mg, bid
     Dates: start: 2012
  4. CELEXA                             /00582602/ [Concomitant]
     Dosage: 20 mg, qd
     Route: 048

REACTIONS (3)
  - Influenza like illness [Unknown]
  - Insomnia [Unknown]
  - Fatigue [Unknown]
